FAERS Safety Report 9688861 (Version 1)
Quarter: 2013Q4

REPORT INFORMATION
  Report Type: Spontaneous
  Country: US (occurrence: None)
  Receive Date: 20131113
  Receipt Date: 20131113
  Transmission Date: 20140711
  Serious: No
  Sender: FDA-Public Use
  Company Number: 2013CT000091

PATIENT
  Age: 54 Year
  Sex: Female
  Weight: 111.59 kg

DRUGS (1)
  1. KORLYM [Suspect]
     Indication: PITUITARY-DEPENDENT CUSHING^S SYNDROME
     Dosage: 300 MG; QD;
     Dates: start: 20131016

REACTIONS (3)
  - Vaginal haemorrhage [None]
  - Limb discomfort [None]
  - Pain [None]
